FAERS Safety Report 7025643-0 (Version None)
Quarter: 2010Q4

REPORT INFORMATION
  Report Type: 
  Country: None (occurrence: None)
  Receive Date: 20101004
  Receipt Date: 20100517
  Transmission Date: 20110411
  Serious: Yes (Other)
  Sender: FDA-Public Use
  Company Number: US-ASTRAZENECA-2009SE14678

PATIENT
  Sex: Male

DRUGS (2)
  1. SEROQUEL [Suspect]
     Route: 048
     Dates: start: 20050104
  2. SERTRALINE HYDROCHLORIDE [Concomitant]
     Dosage: 100 MG TAKE ONE AND ONE-HALF TABLETS BY MOUTH EVERY MORNING
     Route: 048
     Dates: start: 20050104

REACTIONS (2)
  - ORGANIC ERECTILE DYSFUNCTION [None]
  - TYPE 2 DIABETES MELLITUS [None]
